FAERS Safety Report 8234047-4 (Version None)
Quarter: 2012Q1

REPORT INFORMATION
  Report Type: 
  Country: None (occurrence: None)
  Receive Date: 20120326
  Receipt Date: 20120326
  Transmission Date: 20120608
  Serious: Yes (Hospitalization)
  Sender: FDA-Public Use
  Company Number: None

PATIENT
  Age: 65 Year
  Sex: Female

DRUGS (4)
  1. HYDROCHOLOROTHIAZIDE [Concomitant]
     Route: 048
  2. RALOXIFENE HCL [Concomitant]
     Route: 048
  3. CIPROFLOXACIN [Suspect]
     Indication: DIARRHOEA INFECTIOUS
     Dosage: CIPROFLOXACIN 500MG
     Route: 048
     Dates: start: 20120301, end: 20120305
  4. SIMVASTATIN [Concomitant]
     Indication: HYPERLIPIDAEMIA
     Dosage: SIMVASTATIN 80MG
     Route: 049

REACTIONS (4)
  - RHABDOMYOLYSIS [None]
  - RENAL FAILURE [None]
  - DIALYSIS [None]
  - ABDOMINAL PAIN [None]
